FAERS Safety Report 21223136 (Version 4)
Quarter: 2023Q1

REPORT INFORMATION
  Report Type: Spontaneous
  Country: US (occurrence: US)
  Receive Date: 20220817
  Receipt Date: 20230125
  Transmission Date: 20230418
  Serious: No
  Sender: FDA-Public Use
  Company Number: US-BIOGEN-2022BI01146401

PATIENT
  Sex: Female

DRUGS (4)
  1. PLEGRIDY [Suspect]
     Active Substance: PEGINTERFERON BETA-1A
     Indication: Multiple sclerosis
     Route: 050
     Dates: start: 20220510, end: 20220524
  2. PLEGRIDY [Suspect]
     Active Substance: PEGINTERFERON BETA-1A
     Route: 050
     Dates: start: 20220719
  3. PLEGRIDY [Suspect]
     Active Substance: PEGINTERFERON BETA-1A
     Route: 050
     Dates: start: 20220607, end: 20220621
  4. PLEGRIDY [Suspect]
     Active Substance: PEGINTERFERON BETA-1A
     Route: 050
     Dates: start: 20220705

REACTIONS (11)
  - Intentional underdose [Recovered/Resolved]
  - Multiple sclerosis [Not Recovered/Not Resolved]
  - Fatigue [Recovered/Resolved]
  - Abdominal pain upper [Not Recovered/Not Resolved]
  - Injection site pain [Not Recovered/Not Resolved]
  - Drug specific antibody present [Unknown]
  - Injection site erythema [Recovered/Resolved]
  - Injection site warmth [Not Recovered/Not Resolved]
  - Injection site pruritus [Recovered/Resolved]
  - Headache [Recovered/Resolved]
  - Injection site rash [Recovered/Resolved with Sequelae]

NARRATIVE: CASE EVENT DATE: 20220101
